FAERS Safety Report 9858124 (Version 1)
Quarter: 2014Q1

REPORT INFORMATION
  Report Type: Spontaneous
  Country: US (occurrence: None)
  Receive Date: 20140129
  Receipt Date: 20140129
  Transmission Date: 20141002
  Serious: Yes (Other)
  Sender: FDA-Public Use
  Company Number: None

PATIENT
  Age: 52 Year
  Sex: Female
  Weight: 58.51 kg

DRUGS (2)
  1. CYMBALTA [Suspect]
     Indication: ANXIETY
     Dosage: CHRONIC WEEDY
  2. CYMBALTA [Suspect]
     Indication: DEPRESSION
     Dosage: CHRONIC WEEDY

REACTIONS (2)
  - No therapeutic response [None]
  - Product substitution issue [None]
